FAERS Safety Report 14897204 (Version 1)
Quarter: 2018Q2

REPORT INFORMATION
  Report Type: Spontaneous
  Country: MX (occurrence: MX)
  Receive Date: 20180515
  Receipt Date: 20180515
  Transmission Date: 20180711
  Serious: Yes (Life-Threatening, Hospitalization)
  Sender: FDA-Public Use
  Company Number: PHHY2018MX009067

PATIENT
  Age: 42 Year
  Sex: Male

DRUGS (2)
  1. IBUPROFEN. [Suspect]
     Active Substance: IBUPROFEN
     Dosage: 6 DF, QD
     Route: 065
  2. IBUPROFEN. [Suspect]
     Active Substance: IBUPROFEN
     Indication: HEADACHE
     Dosage: 4 DF, QD
     Route: 065

REACTIONS (12)
  - Hyperchloraemia [Recovered/Resolved]
  - Hypokalaemia [Recovered/Resolved]
  - Gait disturbance [Recovered/Resolved]
  - Anion gap increased [Recovered/Resolved]
  - Restlessness [Recovered/Resolved]
  - Muscle disorder [Recovered/Resolved]
  - Renal tubular acidosis [Recovered/Resolved]
  - Metabolic acidosis [Recovered/Resolved]
  - Somnolence [Recovered/Resolved]
  - Dysstasia [Recovered/Resolved]
  - pH urine increased [Recovered/Resolved]
  - Acute kidney injury [Recovered/Resolved]
